FAERS Safety Report 25846157 (Version 1)
Quarter: 2025Q3

REPORT INFORMATION
  Report Type: Spontaneous
  Country: EU (occurrence: EU)
  Receive Date: 20250925
  Receipt Date: 20250925
  Transmission Date: 20251020
  Serious: Yes (Death, Hospitalization)
  Sender: MYLAN
  Company Number: EU-MYLANLABS-2025M1080587

PATIENT
  Age: 71 Year
  Sex: Male

DRUGS (2)
  1. ACETAMINOPHEN [Suspect]
     Active Substance: ACETAMINOPHEN
     Indication: Pyrexia
     Dosage: 1 GRAM, Q8H
  2. IBUPROFEN [Suspect]
     Active Substance: IBUPROFEN
     Indication: Pyrexia
     Dosage: 400 MILLIGRAM, Q8H

REACTIONS (3)
  - Toxic epidermal necrolysis [Fatal]
  - Intentional product misuse [Fatal]
  - Drug ineffective [Unknown]
